FAERS Safety Report 11313950 (Version 1)
Quarter: 2015Q3

REPORT INFORMATION
  Report Type: Spontaneous
  Country: US (occurrence: US)
  Receive Date: 20150727
  Receipt Date: 20150727
  Transmission Date: 20151125
  Serious: No
  Sender: FDA-Public Use
  Company Number: US-ABBVIE-15P-163-1418200-00

PATIENT
  Age: 45 Year
  Sex: Female
  Weight: 72.64 kg

DRUGS (3)
  1. BENAZEPRIL HYDROCHLOROTHIAZIDE EG [Concomitant]
     Indication: PRODUCT USED FOR UNKNOWN INDICATION
  2. SYNTHROID [Suspect]
     Active Substance: LEVOTHYROXINE SODIUM
     Indication: HYPOTHYROIDISM
     Route: 048
     Dates: start: 2000
  3. SYNTHROID [Suspect]
     Active Substance: LEVOTHYROXINE SODIUM
     Route: 048

REACTIONS (5)
  - Drug dose omission [Recovered/Resolved]
  - Nausea [Not Recovered/Not Resolved]
  - Back pain [Not Recovered/Not Resolved]
  - Headache [Not Recovered/Not Resolved]
  - Local swelling [Not Recovered/Not Resolved]

NARRATIVE: CASE EVENT DATE: 201506
